FAERS Safety Report 6130783-4 (Version None)
Quarter: 2009Q1

REPORT INFORMATION
  Report Type: 
  Country: None (occurrence: None)
  Receive Date: 20090325
  Receipt Date: 20090319
  Transmission Date: 20090719
  Serious: Yes (Other)
  Sender: FDA-Public Use
  Company Number: AU-BAYER-200916493GPV

PATIENT
  Age: 47 Year
  Sex: Female
  Weight: 80 kg

DRUGS (1)
  1. MAGNEVIST [Suspect]
     Indication: NUCLEAR MAGNETIC RESONANCE IMAGING BRAIN
     Dosage: TOTAL DAILY DOSE: 10 ML
     Route: 040
     Dates: start: 20090319, end: 20090319

REACTIONS (3)
  - DYSPNOEA [None]
  - OEDEMA PERIPHERAL [None]
  - PRURITUS [None]
